FAERS Safety Report 8233994-7 (Version None)
Quarter: 2012Q1

REPORT INFORMATION
  Report Type: 
  Country: None (occurrence: None)
  Receive Date: 20120323
  Receipt Date: 20120312
  Transmission Date: 20120608
  Serious: Yes (Hospitalization, Other)
  Sender: FDA-Public Use
  Company Number: 2012MA003300

PATIENT
  Sex: Female
  Weight: 67.1324 kg

DRUGS (81)
  1. BUTAZOLIDIN [Concomitant]
  2. ELAVIL [Concomitant]
  3. AMITRIPTYLINE HCL [Concomitant]
  4. ASPIRIN [Concomitant]
  5. RYTHMOL [Concomitant]
  6. DICYCLOMINE [Concomitant]
  7. VIBRAMYCIN [Concomitant]
  8. DULCOLAX [Concomitant]
  9. MIKE OF MAGNESIA [Concomitant]
  10. SPIRONOLACTONE [Concomitant]
  11. DETROL [Concomitant]
  12. COUMADIN [Concomitant]
  13. ENALAPRIL [Concomitant]
  14. LOVASTATIN [Concomitant]
  15. AMLODIPINE [Concomitant]
  16. DIGOXIN [Suspect]
     Indication: ATRIAL FIBRILLATION
     Dosage: 0.5 MG; QD; PO
     Route: 048
     Dates: start: 20010611, end: 20090729
  17. DISALCID [Concomitant]
  18. THYROID TAB [Concomitant]
  19. ARTHROTEK [Concomitant]
  20. VERAPAMIL [Concomitant]
  21. LASIX [Concomitant]
  22. COZAAR [Concomitant]
  23. SENOKOT [Concomitant]
  24. TYLENOL [Concomitant]
  25. ETRAFON [Concomitant]
  26. NALFON [Concomitant]
  27. ZOCOR [Concomitant]
  28. LIPITOR [Concomitant]
  29. BETADINE [Concomitant]
  30. NORVASC [Concomitant]
  31. ALTACE [Concomitant]
  32. HYDROCORTISONE [Concomitant]
  33. DETROL LA [Concomitant]
  34. PROPAFENONE HCL [Concomitant]
  35. BENTYL [Concomitant]
  36. DYAZIDE [Concomitant]
  37. SYNTHROID [Concomitant]
  38. LIDOCAINE [Concomitant]
  39. COLESTID [Concomitant]
  40. KENALOG [Concomitant]
  41. CARDIZEM [Concomitant]
  42. OXYBUTYNIN [Concomitant]
  43. HALEY'S M-O [Concomitant]
  44. ALDACTONE [Concomitant]
  45. STERIZOLIDIN [Concomitant]
  46. ZYLOPRIM [Concomitant]
  47. NAPROXEN (ALEVE) [Concomitant]
  48. XANAX [Concomitant]
  49. METAMUCIL-2 [Concomitant]
  50. METOPROLOL SUCCINATE [Concomitant]
  51. POLYSPORIN OINTMENT [Concomitant]
  52. CLONIDINE [Concomitant]
  53. COLACE [Concomitant]
  54. BENARDYL [Concomitant]
  55. DITROPAN [Concomitant]
  56. BETA BLOCKER [Concomitant]
  57. LOPRESSOR [Concomitant]
  58. DAYPRO [Concomitant]
  59. VOLTAREN [Concomitant]
  60. NAPROSYN [Concomitant]
  61. HYDROGEN PEROXIDE SOLUTION [Concomitant]
  62. ACETIC ACID [Concomitant]
  63. TOPROL-XL [Concomitant]
  64. LISINOPRIL [Concomitant]
  65. ALPRAZOLAM [Concomitant]
  66. MAGNESIUM CITRATE [Concomitant]
  67. GLYCERIN [Concomitant]
  68. ZOVIRAX [Concomitant]
  69. MIRACIL [Concomitant]
  70. CLINDAMYCIN [Concomitant]
  71. ARICEPT [Concomitant]
  72. SIMVASTATIN [Concomitant]
  73. FIBERCON [Concomitant]
  74. VITAMIN TAB [Concomitant]
  75. STOOL SOFTENER [Concomitant]
  76. KEFLEX [Concomitant]
  77. LOPRESSOR [Concomitant]
  78. POTASSIUM CHLORIDE [Concomitant]
  79. HYDROCHLOROTHIAZIDE [Concomitant]
  80. MEVACOR [Concomitant]
  81. LIDOCAINE W/ EPINEPHRINE [Concomitant]

REACTIONS (101)
  - FATIGUE [None]
  - MUSCULOSKELETAL PAIN [None]
  - DISCOMFORT [None]
  - HEMIPARESIS [None]
  - EPISTAXIS [None]
  - AFFECTIVE DISORDER [None]
  - ASTHENIA [None]
  - BRADYCARDIA [None]
  - DYSFUNCTIONAL UTERINE BLEEDING [None]
  - SPINAL OSTEOARTHRITIS [None]
  - URINARY TRACT INFECTION [None]
  - PYREXIA [None]
  - HYPOAESTHESIA [None]
  - PARAESTHESIA [None]
  - PAIN IN EXTREMITY [None]
  - COSTOCHONDRITIS [None]
  - CRYING [None]
  - MITRAL VALVE DISEASE [None]
  - DISEASE RECURRENCE [None]
  - INJURY [None]
  - SOMATOFORM DISORDER [None]
  - MALAISE [None]
  - WEIGHT DECREASED [None]
  - POLLAKIURIA [None]
  - NECK PAIN [None]
  - HYPERCHOLESTEROLAEMIA [None]
  - DIVERTICULITIS [None]
  - GAIT DISTURBANCE [None]
  - HYPOKALAEMIA [None]
  - DIZZINESS [None]
  - POSTMENOPAUSAL HAEMORRHAGE [None]
  - CLAUSTROPHOBIA [None]
  - COUGH [None]
  - SINUSITIS [None]
  - DERMATITIS [None]
  - CANDIDIASIS [None]
  - BACK PAIN [None]
  - DIARRHOEA [None]
  - FLATULENCE [None]
  - RECTOCELE [None]
  - PSYCHOTIC DISORDER [None]
  - HALLUCINATION [None]
  - DYSARTHRIA [None]
  - OEDEMA PERIPHERAL [None]
  - CONFUSIONAL STATE [None]
  - HAEMORRHAGE [None]
  - ONYCHOMYCOSIS [None]
  - DYSPHAGIA [None]
  - EXCORIATION [None]
  - PARKINSONISM [None]
  - MENTAL STATUS CHANGES [None]
  - DECREASED APPETITE [None]
  - ENDOMETRIAL HYPERPLASIA [None]
  - BRONCHITIS [None]
  - HYPOTHYROIDISM [None]
  - CYSTITIS [None]
  - ABDOMINAL PAIN [None]
  - CARDIAC FAILURE CONGESTIVE [None]
  - EMBOLIC STROKE [None]
  - CONSTIPATION [None]
  - JOINT RANGE OF MOTION DECREASED [None]
  - DELIRIUM [None]
  - COLITIS [None]
  - ATRIAL FIBRILLATION [None]
  - NO THERAPEUTIC RESPONSE [None]
  - ASTHENOPIA [None]
  - FUNGAL SKIN INFECTION [None]
  - HERPES ZOSTER [None]
  - FEELING COLD [None]
  - DIVERTICULUM [None]
  - ANXIETY [None]
  - BALANCE DISORDER [None]
  - CHOKING [None]
  - ECCHYMOSIS [None]
  - INTERVERTEBRAL DISC DEGENERATION [None]
  - GOUT [None]
  - UTERINE HAEMORRHAGE [None]
  - NERVOUSNESS [None]
  - FAECAL INCONTINENCE [None]
  - MYALGIA [None]
  - CARPAL TUNNEL SYNDROME [None]
  - DRUG INEFFECTIVE [None]
  - TACHYCARDIA [None]
  - RASH [None]
  - POOR PERIPHERAL CIRCULATION [None]
  - MEMORY IMPAIRMENT [None]
  - TOXICITY TO VARIOUS AGENTS [None]
  - HYPERTENSION [None]
  - DEPRESSION [None]
  - ARTHRITIS [None]
  - ABDOMINAL DISCOMFORT [None]
  - COR PULMONALE [None]
  - TRICUSPID VALVE DISEASE [None]
  - DISORIENTATION [None]
  - DYSSTASIA [None]
  - TREATMENT FAILURE [None]
  - VERTIGO [None]
  - TACHYARRHYTHMIA [None]
  - SALIVARY HYPERSECRETION [None]
  - SKIN ULCER [None]
  - ECONOMIC PROBLEM [None]
